FAERS Safety Report 5274122-X (Version None)
Quarter: 2007Q1

REPORT INFORMATION
  Report Type: 
  Country: None (occurrence: None)
  Receive Date: 20070323
  Receipt Date: 20070318
  Transmission Date: 20070707
  Serious: No
  Sender: FDA-Public Use
  Company Number: JP-BRISTOL-MYERS SQUIBB COMPANY-13684147

PATIENT
  Age: 52 Year
  Sex: Female

DRUGS (4)
  1. BARACLUDE [Suspect]
     Indication: HEPATIC CIRRHOSIS
     Route: 048
     Dates: start: 20061218, end: 20070204
  2. URSO [Concomitant]
     Route: 048
     Dates: start: 20050219
  3. PURSENNID [Concomitant]
     Route: 048
     Dates: start: 20060807
  4. LIVACT [Concomitant]
     Route: 048
     Dates: start: 20060831

REACTIONS (1)
  - EPIGASTRIC DISCOMFORT [None]
